FAERS Safety Report 21105812 (Version 1)
Quarter: 2022Q3

REPORT INFORMATION
  Report Type: Spontaneous
  Country: CN (occurrence: CN)
  Receive Date: 20220720
  Receipt Date: 20220720
  Transmission Date: 20221026
  Serious: Yes (Hospitalization)
  Sender: FDA-Public Use
  Company Number: CN-Merck Healthcare KGaA-9336289

PATIENT
  Age: 65 Year
  Sex: Male
  Weight: 67 kg

DRUGS (11)
  1. ERBITUX [Suspect]
     Active Substance: CETUXIMAB
     Indication: Rectal cancer
     Dosage: 700 MG, UNK
     Route: 041
     Dates: start: 20220416, end: 20220429
  2. ERBITUX [Suspect]
     Active Substance: CETUXIMAB
     Dosage: 800 MG, UNK
     Route: 041
     Dates: start: 20220507
  3. ERBITUX [Suspect]
     Active Substance: CETUXIMAB
     Dosage: 800 MG, UNK
     Route: 041
     Dates: start: 20220429
  4. LEUCOVORIN CALCIUM [Concomitant]
     Active Substance: LEUCOVORIN CALCIUM
     Indication: Rectal cancer
     Dosage: .7 G, UNK
     Route: 041
     Dates: start: 20220416, end: 20220429
  5. LEUCOVORIN CALCIUM [Concomitant]
     Active Substance: LEUCOVORIN CALCIUM
     Dosage: .7 G, UNK
     Route: 041
     Dates: start: 20220507
  6. FLUOROURACIL [Concomitant]
     Active Substance: FLUOROURACIL
     Indication: Rectal cancer
     Dosage: .7 G, UNK
     Route: 042
     Dates: start: 20220416, end: 20220429
  7. FLUOROURACIL [Concomitant]
     Active Substance: FLUOROURACIL
     Dosage: 4 G, UNK
     Route: 042
     Dates: start: 20220416, end: 20220429
  8. FLUOROURACIL [Concomitant]
     Active Substance: FLUOROURACIL
     Dosage: .6 G, UNK
     Route: 042
     Dates: start: 20220507
  9. FLUOROURACIL [Concomitant]
     Active Substance: FLUOROURACIL
     Dosage: 3.6 G, UNK
     Route: 042
     Dates: start: 20220507
  10. IRINOTECAN HYDROCHLORIDE [Concomitant]
     Active Substance: IRINOTECAN HYDROCHLORIDE
     Indication: Rectal cancer
     Dosage: 300 MG, UNK
     Route: 041
     Dates: start: 20220416, end: 20220429
  11. IRINOTECAN HYDROCHLORIDE [Concomitant]
     Active Substance: IRINOTECAN HYDROCHLORIDE
     Dosage: 300 MG, UNK
     Route: 041
     Dates: start: 20220507

REACTIONS (1)
  - Myelosuppression [Recovering/Resolving]

NARRATIVE: CASE EVENT DATE: 20220429
